FAERS Safety Report 14325284 (Version 1)
Quarter: 2017Q4

REPORT INFORMATION
  Report Type: Spontaneous
  Country: US (occurrence: US)
  Receive Date: 20171226
  Receipt Date: 20171226
  Transmission Date: 20180321
  Serious: No
  Sender: FDA-Public Use
  Company Number: US-LUNDBECK-DKLU2040821

PATIENT
  Age: 10 Year
  Sex: Male

DRUGS (5)
  1. ONFI [Suspect]
     Active Substance: CLOBAZAM
     Indication: PARTIAL SEIZURES
     Route: 048
     Dates: start: 201703
  2. ONFI [Suspect]
     Active Substance: CLOBAZAM
     Indication: EPILEPSY
     Route: 048
     Dates: start: 201709
  3. ONFI [Suspect]
     Active Substance: CLOBAZAM
     Indication: SIMPLE PARTIAL SEIZURES
     Route: 048
  4. ONFI [Suspect]
     Active Substance: CLOBAZAM
     Route: 048
  5. ONFI [Suspect]
     Active Substance: CLOBAZAM
     Route: 048

REACTIONS (3)
  - Sedation [Unknown]
  - Diarrhoea [Unknown]
  - Speech disorder [Unknown]

NARRATIVE: CASE EVENT DATE: 20171011
